FAERS Safety Report 9694467 (Version 2)
Quarter: 2013Q4

REPORT INFORMATION
  Report Type: Spontaneous
  Country: GL (occurrence: GL)
  Receive Date: 20131118
  Receipt Date: 20131210
  Transmission Date: 20140711
  Serious: Yes (Life-Threatening, Hospitalization, Other)
  Sender: FDA-Public Use
  Company Number: GL-GILEAD-2013-0087461

PATIENT
  Age: 49 Year
  Sex: Female

DRUGS (12)
  1. TRUVADA [Suspect]
     Indication: HIV INFECTION
     Dosage: STYRKE: 245+200 MG.
     Route: 048
     Dates: start: 200705, end: 20131105
  2. NORVIR [Concomitant]
     Indication: HIV ANTIBODY POSITIVE
     Dosage: 100 MG, BID
  3. NORVIR [Concomitant]
  4. PANTOLOC                           /01263204/ [Concomitant]
     Route: 048
  5. PANTOLOC                           /01263204/ [Concomitant]
     Route: 048
  6. NITROFURANTOIN [Concomitant]
     Route: 048
  7. NITROFURANTOIN [Concomitant]
     Route: 048
  8. PREZISTA [Concomitant]
     Indication: HIV ANTIBODY POSITIVE
     Dates: start: 20090828
  9. SULFAMETHOXAZOL W/TRIMETOPRIM [Concomitant]
     Indication: ANTIFUNGAL PROPHYLAXIS
     Route: 048
  10. SULFAMETHOXAZOL W/TRIMETOPRIM [Concomitant]
     Route: 048
  11. METOPROLOL SUCCINATE [Concomitant]
  12. METOPROLOL SUCCINATE [Concomitant]

REACTIONS (3)
  - Renal failure [Not Recovered/Not Resolved]
  - Renal impairment [Not Recovered/Not Resolved]
  - Proteinuria [Not Recovered/Not Resolved]
